FAERS Safety Report 11220329 (Version 1)
Quarter: 2015Q2

REPORT INFORMATION
  Report Type: Spontaneous
  Country: FR (occurrence: None)
  Receive Date: 20150624
  Receipt Date: 20150624
  Transmission Date: 20150821
  Serious: Yes (Hospitalization)
  Sender: FDA-Public Use
  Company Number: NSR_02139_2015

PATIENT
  Age: 27 Year
  Sex: Male

DRUGS (2)
  1. TRAMADOL (TRAMADOL) [Suspect]
     Active Substance: TRAMADOL
     Indication: CRANIOCEREBRAL INJURY
  2. ACETAMINOPHEN (ACETAMINOPHEN) [Suspect]
     Active Substance: ACETAMINOPHEN
     Indication: CRANIOCEREBRAL INJURY

REACTIONS (3)
  - Cholestasis [None]
  - Drug-induced liver injury [None]
  - Hepatic necrosis [None]
